FAERS Safety Report 25720809 (Version 4)
Quarter: 2025Q4

REPORT INFORMATION
  Report Type: Spontaneous
  Country: US (occurrence: US)
  Receive Date: 20250825
  Receipt Date: 20251126
  Transmission Date: 20260118
  Serious: Yes (Death)
  Sender: ASTELLAS
  Company Number: US-ASTELLAS-2025-AER-043724

PATIENT
  Sex: Male

DRUGS (1)
  1. PADCEV [Suspect]
     Active Substance: ENFORTUMAB VEDOTIN-EJFV
     Indication: Product used for unknown indication
     Dosage: LYOPHILIZED POWDER IN A SINGLE-DOSE VIAL FOR RECONSTITUTION
     Route: 065

REACTIONS (2)
  - Death [Fatal]
  - Intercepted product preparation error [Unknown]
